FAERS Safety Report 15601390 (Version 1)
Quarter: 2018Q4

REPORT INFORMATION
  Report Type: Report from Study
  Country: US (occurrence: US)
  Receive Date: 20181109
  Receipt Date: 20181109
  Transmission Date: 20190205
  Serious: Yes (Other)
  Sender: FDA-Public Use
  Company Number: PHEH2018US046940

PATIENT
  Sex: Male

DRUGS (1)
  1. ENTRESTO [Suspect]
     Active Substance: SACUBITRIL\VALSARTAN
     Indication: EJECTION FRACTION DECREASED
     Dosage: 1 DF (24MG SACUBITRIL /26 MG VALSARTAN), BID
     Route: 065

REACTIONS (3)
  - Disorientation [Unknown]
  - Blood pressure decreased [Unknown]
  - Vision blurred [Unknown]
